FAERS Safety Report 6993689-4 (Version None)
Quarter: 2010Q3

REPORT INFORMATION
  Report Type: 
  Country: None (occurrence: None)
  Receive Date: 20100917
  Receipt Date: 20070613
  Transmission Date: 20110219
  Serious: Yes (Hospitalization, Other)
  Sender: FDA-Public Use
  Company Number: US-ASTRAZENECA-2006UW23755

PATIENT
  Age: 46 Year
  Sex: Female
  Weight: 88.5 kg

DRUGS (13)
  1. SEROQUEL [Suspect]
     Indication: DEPRESSION
     Dosage: 100 MG - 200 MG
     Route: 048
     Dates: start: 20040824
  2. SEROQUEL [Suspect]
     Dosage: 100MG - 200MG
     Route: 048
     Dates: start: 20050101
  3. HALDOL [Concomitant]
  4. ZYPREXA/SYMBYAX [Concomitant]
  5. ACTOS [Concomitant]
     Dates: start: 20050509
  6. LOTREL [Concomitant]
     Dosage: 5 - 20 MG
     Dates: start: 20040829
  7. AMARYL [Concomitant]
     Dates: start: 20040904
  8. LEXAPRO [Concomitant]
     Dosage: 10 - 20 MG
     Dates: start: 20050718
  9. METFORMIN [Concomitant]
     Dates: start: 20050826
  10. PERPHEN/AMIT [Concomitant]
     Dosage: 4 - 25 MG
     Dates: start: 20040703
  11. LORAZEPAM [Concomitant]
     Dates: start: 20060421
  12. FLUOXETINE [Concomitant]
     Dates: start: 20060115
  13. AVANDARYL [Concomitant]
     Dates: start: 20060911

REACTIONS (6)
  - CATARACT [None]
  - DIABETES MELLITUS [None]
  - DIABETIC COMPLICATION [None]
  - GESTATIONAL DIABETES [None]
  - GLYCOSURIA [None]
  - HYPERGLYCAEMIA [None]
